APPROVED DRUG PRODUCT: PAROXETINE HYDROCHLORIDE
Active Ingredient: PAROXETINE HYDROCHLORIDE
Strength: EQ 20MG BASE
Dosage Form/Route: TABLET;ORAL
Application: A076618 | Product #002 | TE Code: AB
Applicant: CHARTWELL RX SCIENCES LLC
Approved: Aug 15, 2005 | RLD: No | RS: No | Type: RX